FAERS Safety Report 21297493 (Version 1)
Quarter: 2022Q3

REPORT INFORMATION
  Report Type: Spontaneous
  Country: US (occurrence: None)
  Receive Date: 20220902
  Receipt Date: 20220902
  Transmission Date: 20221027
  Serious: Yes (Other)
  Sender: FDA-Public Use
  Company Number: None

PATIENT
  Age: 75 Year
  Sex: Male

DRUGS (1)
  1. LOSARTAN [Suspect]
     Active Substance: LOSARTAN
     Indication: Hypertension
     Dosage: 12.5MG  EVERY DAY PO?
     Route: 048
     Dates: start: 20220404, end: 20220722

REACTIONS (1)
  - Angioedema [None]

NARRATIVE: CASE EVENT DATE: 20220721
